FAERS Safety Report 5656209-2 (Version None)
Quarter: 2008Q1

REPORT INFORMATION
  Report Type: 
  Country: None (occurrence: None)
  Receive Date: 20080305
  Receipt Date: 20080224
  Transmission Date: 20080703
  Serious: No
  Sender: FDA-Public Use
  Company Number: 20084799

PATIENT
  Sex: Female

DRUGS (1)
  1. LIORESAL [Suspect]
     Indication: MUSCLE SPASTICITY
     Dosage: MCG,DAILY,INTRATHECAL
     Route: 037

REACTIONS (1)
  - CATHETER RELATED COMPLICATION [None]
